FAERS Safety Report 5526497-1 (Version None)
Quarter: 2007Q4

REPORT INFORMATION
  Report Type: 
  Country: None (occurrence: None)
  Receive Date: 20071123
  Receipt Date: 20070125
  Transmission Date: 20080405
  Serious: Yes (Hospitalization)
  Sender: FDA-Public Use
  Company Number: US-JNJFOC-20070107138

PATIENT
  Age: 67 Year
  Sex: Male
  Weight: 63.5036 kg

DRUGS (2)
  1. LEVAQUIN [Suspect]
     Indication: PROSTATITIS
     Dosage: 500 MG, IN 1 DAY, INTRAVENOUS
     Route: 042
     Dates: start: 20061209, end: 20061212
  2. LEVAQUIN [Suspect]
     Indication: PROSTATITIS
     Dosage: 500 MG, ORAL
     Route: 048
     Dates: start: 20061213, end: 20061222

REACTIONS (6)
  - ARTHRALGIA [None]
  - CHEST DISCOMFORT [None]
  - HYPOAESTHESIA [None]
  - MUSCULAR WEAKNESS [None]
  - NAUSEA [None]
  - VOMITING [None]
